FAERS Safety Report 20039788 (Version 2)
Quarter: 2021Q4

REPORT INFORMATION
  Report Type: Spontaneous
  Country: BR (occurrence: BR)
  Receive Date: 20211106
  Receipt Date: 20211110
  Transmission Date: 20220303
  Serious: Yes (Life-Threatening)
  Sender: FDA-Public Use
  Company Number: None

PATIENT
  Age: 69 Year
  Sex: Female

DRUGS (3)
  1. CUBICIN [Suspect]
     Active Substance: DAPTOMYCIN
     Dosage: UNK
     Dates: start: 20190301
  2. DIMENHYDRINATE\PYRIDOXINE HYDROCHLORIDE [Suspect]
     Active Substance: DIMENHYDRINATE\PYRIDOXINE HYDROCHLORIDE
     Indication: Vomiting
     Dosage: 3 MG+ 5 MG+ 100 MG +100 MG, 1 AMPOLAS S/N
     Route: 042
     Dates: start: 20190222, end: 20190302
  3. CARBOHYDRATES\FATTY ACIDS\MINERALS\PROTEIN\VITAMINS [Suspect]
     Active Substance: CARBOHYDRATES\FATTY ACIDS\MINERALS\PROTEIN\VITAMINS
     Indication: Routine health maintenance
     Dosage: 200 MILLILITER, BID
     Route: 048
     Dates: start: 20190225, end: 20190301

REACTIONS (3)
  - Anaphylactic reaction [Recovering/Resolving]
  - Acute kidney injury [Recovering/Resolving]
  - Hyperkalaemia [Recovering/Resolving]

NARRATIVE: CASE EVENT DATE: 20190301
